FAERS Safety Report 5913748-4 (Version None)
Quarter: 2008Q4

REPORT INFORMATION
  Report Type: 
  Country: None (occurrence: None)
  Receive Date: 20081007
  Receipt Date: 20080923
  Transmission Date: 20090506
  Serious: Yes (Hospitalization)
  Sender: FDA-Public Use
  Company Number: 2008SP002293

PATIENT
  Age: 58 Year
  Sex: Male

DRUGS (3)
  1. XOPENEX HFA [Suspect]
     Indication: EMPHYSEMA
     Dosage: INHALATION
     Route: 055
     Dates: start: 20080801, end: 20080101
  2. XOPENEX HFA [Suspect]
     Indication: EMPHYSEMA
     Dosage: INHALATION
     Route: 055
     Dates: start: 20080101
  3. TETANUS VACCINE (PATH) PREV. [Concomitant]

REACTIONS (11)
  - ANXIETY [None]
  - BLOOD PRESSURE INCREASED [None]
  - BRONCHITIS [None]
  - CHRONIC OBSTRUCTIVE PULMONARY DISEASE [None]
  - CONDITION AGGRAVATED [None]
  - DRUG INEFFECTIVE [None]
  - GASTROOESOPHAGEAL REFLUX DISEASE [None]
  - HYPERLIPIDAEMIA [None]
  - INSOMNIA [None]
  - OROPHARYNGEAL PAIN [None]
  - RHINITIS ALLERGIC [None]
